FAERS Safety Report 7663981-9 (Version None)
Quarter: 2011Q3

REPORT INFORMATION
  Report Type: 
  Country: None (occurrence: None)
  Receive Date: 20110805
  Receipt Date: 20100917
  Transmission Date: 20111222
  Serious: No
  Sender: FDA-Public Use
  Company Number: US-ABBOTT-10P-163-0668871-00

PATIENT
  Sex: Male
  Weight: 90.8 kg

DRUGS (3)
  1. NIASPAN [Suspect]
     Indication: HIGH DENSITY LIPOPROTEIN DECREASED
     Dosage: EVERY EVENING
  2. NIASPAN [Suspect]
     Indication: LOW DENSITY LIPOPROTEIN DECREASED
     Dosage: EVERY EVENING
     Dates: start: 20050101
  3. NIASPAN [Suspect]
     Dosage: 2-1000MG TABS EVERY EVENING
     Dates: start: 20080101

REACTIONS (2)
  - MEDICATION RESIDUE [None]
  - FLUSHING [None]
